FAERS Safety Report 20977735 (Version 1)
Quarter: 2022Q2

REPORT INFORMATION
  Report Type: Spontaneous
  Country: RO (occurrence: RO)
  Receive Date: 20220618
  Receipt Date: 20220618
  Transmission Date: 20220721
  Serious: Yes (Hospitalization)
  Sender: FDA-Public Use
  Company Number: RO-SUN PHARMACEUTICAL INDUSTRIES LTD-2022RR-339163

PATIENT
  Age: 39 Year
  Sex: Male

DRUGS (14)
  1. ARIPIPRAZOLE [Suspect]
     Active Substance: ARIPIPRAZOLE
     Indication: Schizophrenia
     Dosage: 15 MILLIGRAM, ONCE A DAY
     Route: 065
  2. ARIPIPRAZOLE [Suspect]
     Active Substance: ARIPIPRAZOLE
     Dosage: 400 MILLIGRAM, ONCE A MONTH
     Route: 065
  3. OLANZAPINE [Suspect]
     Active Substance: OLANZAPINE
     Indication: Schizoaffective disorder
     Dosage: 20 MILLIGRAM, ONCE A DAY
     Route: 065
  4. BROMAZEPAM [Suspect]
     Active Substance: BROMAZEPAM
     Indication: Schizophrenia
     Dosage: 9 MILLIGRAM, ONCE A DAY
     Route: 065
  5. BROMAZEPAM [Suspect]
     Active Substance: BROMAZEPAM
     Dosage: 3 MILLIGRAM, ONCE A DAY
     Route: 065
  6. CLOZAPINE [Suspect]
     Active Substance: CLOZAPINE
     Indication: Schizophrenia
     Dosage: 600 MILLIGRAM, ONCE A DAY
     Route: 065
  7. CLOZAPINE [Suspect]
     Active Substance: CLOZAPINE
     Dosage: 500 MILLIGRAM, ONCE A DAY
     Route: 065
  8. DIAZEPAM [Suspect]
     Active Substance: DIAZEPAM
     Indication: Schizophrenia
     Dosage: 10 MILLIGRAM, ONCE A DAY
     Route: 065
  9. LEVOMEPROMAZINE [Suspect]
     Active Substance: LEVOMEPROMAZINE
     Indication: Schizophrenia
     Dosage: 75 MILLIGRAM, ONCE A DAY
     Route: 065
  10. LORAZEPAM [Suspect]
     Active Substance: LORAZEPAM
     Indication: Schizophrenia
     Dosage: 1 MILLIGRAM, ONCE A DAY
     Route: 065
  11. NITRAZEPAM [Suspect]
     Active Substance: NITRAZEPAM
     Indication: Schizoaffective disorder
     Dosage: 2.5 MILLIGRAM, ONCE A DAY
     Route: 065
  12. RISPERIDONE [Suspect]
     Active Substance: RISPERIDONE
     Indication: Depression
     Dosage: 4 MILLIGRAM, ONCE A DAY
     Route: 065
  13. VALPROIC ACID [Suspect]
     Active Substance: VALPROIC ACID
     Indication: Schizoaffective disorder
     Dosage: 1000 MILLIGRAM, ONCE A DAY
     Route: 065
  14. VALPROIC ACID [Suspect]
     Active Substance: VALPROIC ACID
     Dosage: 1500 MILLIGRAM, ONCE A DAY

REACTIONS (5)
  - Condition aggravated [Unknown]
  - Drug resistance [Unknown]
  - Treatment noncompliance [Unknown]
  - Drug ineffective [Unknown]
  - Therapeutic product effect incomplete [Unknown]
